FAERS Safety Report 6975095-1 (Version None)
Quarter: 2010Q3

REPORT INFORMATION
  Report Type: 
  Country: None (occurrence: None)
  Receive Date: 20100910
  Receipt Date: 20090202
  Transmission Date: 20110219
  Serious: No
  Sender: FDA-Public Use
  Company Number: US-WYE-H08024709

PATIENT
  Sex: Male
  Weight: 84.44 kg

DRUGS (5)
  1. PRISTIQ [Suspect]
     Indication: DEPRESSION
     Route: 048
     Dates: start: 20090126
  2. VIAGRA [Concomitant]
  3. TOPROL-XL [Concomitant]
  4. XANAX [Concomitant]
  5. FLOMAX [Concomitant]

REACTIONS (2)
  - NAUSEA [None]
  - RHINORRHOEA [None]
